FAERS Safety Report 7426728-7 (Version None)
Quarter: 2011Q2

REPORT INFORMATION
  Report Type: 
  Country: None (occurrence: None)
  Receive Date: 20110420
  Receipt Date: 20110407
  Transmission Date: 20111010
  Serious: Yes (Hospitalization)
  Sender: FDA-Public Use
  Company Number: CA-ELI_LILLY_AND_COMPANY-CA201009003702

PATIENT
  Age: 50 Year
  Sex: Female

DRUGS (4)
  1. MULTI-VITAMIN [Concomitant]
  2. CALCIUM W/VITAMIN D /00188401/ [Concomitant]
  3. FORTEO [Suspect]
     Indication: OSTEOPOROSIS
     Dosage: 20 UG, DAILY (1/D)
     Route: 058
     Dates: start: 20100107
  4. TYLENOL (CAPLET) [Concomitant]

REACTIONS (3)
  - BREAST PROSTHESIS IMPLANTATION [None]
  - BACK PAIN [None]
  - BURNING SENSATION [None]
